FAERS Safety Report 4615343-6 (Version None)
Quarter: 2005Q1

REPORT INFORMATION
  Report Type: 
  Country: None (occurrence: None)
  Receive Date: 20050322
  Receipt Date: 20050311
  Transmission Date: 20050727
  Serious: Yes (Hospitalization)
  Sender: FDA-Public Use
  Company Number: US-NOVOPROD-242887

PATIENT
  Age: 69 Year
  Sex: Male
  Weight: 88 kg

DRUGS (6)
  1. INSULIN DETEMIR [Suspect]
     Indication: INSULIN-REQUIRING TYPE II DIABETES MELLITUS
     Dosage: 78 IU, QD
     Route: 058
     Dates: start: 20041201, end: 20050211
  2. NOVOLOG [Suspect]
     Indication: INSULIN-REQUIRING TYPE II DIABETES MELLITUS
     Dosage: 18 IU, QD
     Route: 058
     Dates: start: 20041201, end: 20050211
  3. LISINOPRIL AND HYDROCHLOROTHIAZIDE [Concomitant]
     Indication: HYPERTENSION
     Dosage: 20/12.5 MG QD
     Route: 048
     Dates: start: 20001001
  4. ELAVIL [Concomitant]
     Indication: NEUROPATHY
     Dosage: 50 MG, QD
     Route: 048
     Dates: start: 20030101
  5. CLOPIDOGREL [Concomitant]
     Indication: PERIPHERAL VASCULAR DISORDER
     Dosage: 75 MG, QD
     Route: 048
     Dates: start: 20040901
  6. GEMFIBROZIL [Concomitant]
     Indication: HYPERLIPIDAEMIA
     Dosage: 600 MG, QD
     Route: 048
     Dates: start: 20030101

REACTIONS (2)
  - CEREBELLAR INFARCTION [None]
  - DIARRHOEA [None]
